FAERS Safety Report 7446783-8 (Version None)
Quarter: 2011Q2

REPORT INFORMATION
  Report Type: 
  Country: None (occurrence: None)
  Receive Date: 20110429
  Receipt Date: 20110111
  Transmission Date: 20111010
  Serious: No
  Sender: FDA-Public Use
  Company Number: US-ASTRAZENECA-2010SE48311

PATIENT
  Age: 60 Year
  Sex: Female

DRUGS (2)
  1. PRILOSEC OTC [Suspect]
     Route: 048
  2. NEXIUM [Suspect]
     Route: 048

REACTIONS (9)
  - HIATUS HERNIA [None]
  - ABDOMINAL PAIN UPPER [None]
  - PALPITATIONS [None]
  - SPEECH DISORDER [None]
  - OROPHARYNGEAL PAIN [None]
  - DRUG DOSE OMISSION [None]
  - EXTRASYSTOLES [None]
  - ULCER [None]
  - DRUG INEFFECTIVE [None]
